FAERS Safety Report 15838181 (Version 1)
Quarter: 2019Q1

REPORT INFORMATION
  Report Type: Spontaneous
  Country: NL (occurrence: NL)
  Receive Date: 20190117
  Receipt Date: 20190117
  Transmission Date: 20190417
  Serious: Yes (Life-Threatening)
  Sender: FDA-Public Use
  Company Number: NL-PFIZER INC-2019022391

PATIENT
  Age: 66 Year
  Sex: Female
  Weight: 70 kg

DRUGS (11)
  1. TIMOGEL [Concomitant]
     Active Substance: TIMOLOL MALEATE
     Dosage: UNK, 1X/DAY
     Route: 047
  2. METOCLOPRAMIDE. [Concomitant]
     Active Substance: METOCLOPRAMIDE
     Dosage: 10 MG, 3X/DAY AS NEEDED
     Route: 048
  3. PRAMIPEXOLE. [Concomitant]
     Active Substance: PRAMIPEXOLE
     Dosage: 0.125 MG, 1X/DAY
     Route: 048
  4. DEXAMETHASONE. [Concomitant]
     Active Substance: DEXAMETHASONE
     Dosage: 4 MG, 2X/DAY ACCORDING TO DOCTOR^S PRESCRIPTION
     Route: 048
  5. NIFEDIPINE. [Concomitant]
     Active Substance: NIFEDIPINE
     Dosage: 30 MG, 1X/DAY
     Route: 048
  6. ABSTRAL [Concomitant]
     Active Substance: FENTANYL CITRATE
     Dosage: 100 UG, 1X/DAY AS NEEDED
     Route: 060
  7. CARBOPLATIN. [Suspect]
     Active Substance: CARBOPLATIN
     Indication: OVARIAN CANCER
     Dosage: 370 MG, CYCLIC
     Route: 042
     Dates: start: 20180912
  8. FENTANYL. [Concomitant]
     Active Substance: FENTANYL
     Dosage: 12 UG/H, ONE PLASTER EVERY THREE DAYS
     Route: 062
  9. GEMCITABINE [Concomitant]
     Active Substance: GEMCITABINE\GEMCITABINE HYDROCHLORIDE
     Indication: OVARIAN CANCER
     Dates: start: 20180912
  10. THIAMAZOLE [Concomitant]
     Active Substance: METHIMAZOLE
     Dosage: 0.5 (UNSPECIFIED UNIT), 1X/DAY
     Route: 048
  11. EMEND [Concomitant]
     Active Substance: APREPITANT
     Dosage: ACCORDING TO DOCTOR^S PRESCRIPTION: 125MG/1X; 80MG/2X
     Route: 048

REACTIONS (7)
  - Dyspnoea [Recovered/Resolved]
  - Feeling abnormal [Recovered/Resolved]
  - Pruritus [Recovered/Resolved]
  - Hypertension [Recovered/Resolved]
  - Erythema [Recovered/Resolved]
  - Swollen tongue [Recovered/Resolved]
  - Rash [Recovered/Resolved]

NARRATIVE: CASE EVENT DATE: 20181031
